FAERS Safety Report 13121008 (Version 1)
Quarter: 2017Q1

REPORT INFORMATION
  Report Type: Spontaneous
  Country: US (occurrence: US)
  Receive Date: 20170117
  Receipt Date: 20170117
  Transmission Date: 20170428
  Serious: Yes (Other)
  Sender: FDA-Public Use
  Company Number: US-IPSEN BIOPHARMACEUTICALS, INC.-2017-00297

PATIENT
  Age: 54 Year
  Sex: Female

DRUGS (2)
  1. DYSPORT [Suspect]
     Active Substance: ABOBOTULINUMTOXINA
     Indication: OFF LABEL USE
  2. DYSPORT [Suspect]
     Active Substance: ABOBOTULINUMTOXINA
     Indication: RHEUMATOID ARTHRITIS
     Dosage: NOT REPORTED
     Route: 065

REACTIONS (2)
  - Off label use [Unknown]
  - Knee operation [Unknown]

NARRATIVE: CASE EVENT DATE: 201612
